FAERS Safety Report 24564377 (Version 2)
Quarter: 2024Q4

REPORT INFORMATION
  Report Type: Spontaneous
  Country: CN (occurrence: CN)
  Receive Date: 20241030
  Receipt Date: 20241112
  Transmission Date: 20250114
  Serious: Yes (Hospitalization, Other)
  Sender: MACLEODS
  Company Number: CN-MACLEODS PHARMA-MAC2024050073

PATIENT

DRUGS (12)
  1. IBANDRONATE SODIUM [Suspect]
     Active Substance: IBANDRONATE SODIUM
     Indication: Metastatic bone disease prophylaxis
     Route: 065
  2. ETHAMBUTOL\ISONIAZID\PYRAZINAMIDE\RIFAMPIN [Suspect]
     Active Substance: ETHAMBUTOL\ETHAMBUTOL DIHYDROCHLORIDE, DL-\ISONIAZID\PYRAZINAMIDE\RIFAMPIN\RIFAMPIN SODIUM
     Indication: Pulmonary tuberculosis
     Dosage: RIFAMPICIN 150 MG, ISONIAZID 75 MG, PYRAZINAMIDE 400 MG +ETHAMBUTOL 275 MG/TABLET, ONE THRICE DAILY
     Route: 065
  3. ETHAMBUTOL\ISONIAZID\PYRAZINAMIDE\RIFAMPIN [Suspect]
     Active Substance: ETHAMBUTOL\ETHAMBUTOL DIHYDROCHLORIDE, DL-\ISONIAZID\PYRAZINAMIDE\RIFAMPIN\RIFAMPIN SODIUM
     Indication: Intestinal tuberculosis
  4. PACLITAXEL [Suspect]
     Active Substance: PACLITAXEL
     Indication: Metastases to bone
     Dosage: FIRST CYCLE CONSISTING OF NAB-PACLITAXEL AT 200 MG ON DAYS 1 AND 8 REPEATED EVERY 3 WEEKS
     Route: 065
  5. PACLITAXEL [Suspect]
     Active Substance: PACLITAXEL
     Indication: Pancreatic carcinoma stage IV
  6. PACLITAXEL [Suspect]
     Active Substance: PACLITAXEL
     Indication: Pancreatic carcinoma metastatic
  7. PACLITAXEL [Suspect]
     Active Substance: PACLITAXEL
     Indication: Metastases to liver
  8. TS-1 [Suspect]
     Active Substance: GIMERACIL\OTERACIL POTASSIUM\TEGAFUR
     Indication: Pancreatic carcinoma stage IV
     Dosage: 60 MG IN THE MORNING AND 40 MG IN THE  EVENING FROM DAYS 1 TO 14, REPEATED EVERY 3 WEEKS
     Route: 065
  9. TS-1 [Suspect]
     Active Substance: GIMERACIL\OTERACIL POTASSIUM\TEGAFUR
     Indication: Metastases to bone
  10. TS-1 [Suspect]
     Active Substance: GIMERACIL\OTERACIL POTASSIUM\TEGAFUR
     Indication: Pancreatic carcinoma metastatic
  11. TS-1 [Suspect]
     Active Substance: GIMERACIL\OTERACIL POTASSIUM\TEGAFUR
     Indication: Metastases to liver
  12. MORPHINE [Suspect]
     Active Substance: MORPHINE
     Indication: Pain management
     Route: 065

REACTIONS (2)
  - Intestinal obstruction [Recovered/Resolved]
  - Drug interaction [Recovered/Resolved]
